FAERS Safety Report 7755215-1 (Version None)
Quarter: 2011Q3

REPORT INFORMATION
  Report Type: 
  Country: None (occurrence: None)
  Receive Date: 20110914
  Receipt Date: 20110901
  Transmission Date: 20111222
  Serious: Yes (Life-Threatening, Hospitalization)
  Sender: FDA-Public Use
  Company Number: THQ2011A05421

PATIENT
  Age: 64 Year
  Sex: Female

DRUGS (10)
  1. PLACEBO [Suspect]
     Indication: RENAL IMPAIRMENT
     Dosage: UNK PER ORAL
     Route: 048
     Dates: start: 20101227
  2. PLACEBO [Suspect]
     Indication: TYPE 2 DIABETES MELLITUS
     Dosage: UNK PER ORAL
     Route: 048
     Dates: start: 20101227
  3. CHLORTHALIDONE [Concomitant]
  4. GLIMEPIRIDE [Concomitant]
  5. ATENOLOL [Concomitant]
  6. ASPIRIN [Concomitant]
  7. SIMVASTATIN [Concomitant]
  8. METFORMIN HCL [Concomitant]
  9. PIOGLITAZONE HYDROCHLORIDE (AS COMPARATOR) (PIOGLITAZONE HYDROCHLORIDE [Suspect]
     Indication: TYPE 2 DIABETES MELLITUS
     Dosage: UNK PER ORAL
     Route: 048
     Dates: start: 20101227
  10. PIOGLITAZONE HYDROCHLORIDE (AS COMPARATOR) (PIOGLITAZONE HYDROCHLORIDE [Suspect]
     Indication: RENAL IMPAIRMENT
     Dosage: UNK PER ORAL
     Route: 048
     Dates: start: 20101227

REACTIONS (6)
  - BLOOD BICARBONATE DECREASED [None]
  - CONDITION AGGRAVATED [None]
  - HIGH DENSITY LIPOPROTEIN DECREASED [None]
  - BLOOD TRIGLYCERIDES INCREASED [None]
  - ISCHAEMIC STROKE [None]
  - RENAL IMPAIRMENT [None]
